FAERS Safety Report 5597406-4 (Version None)
Quarter: 2007Q4

REPORT INFORMATION
  Report Type: 
  Country: None (occurrence: None)
  Receive Date: 20071221
  Receipt Date: 20070830
  Transmission Date: 20080405
  Serious: No
  Sender: FDA-Public Use
  Company Number: SPV1-2007-04013

PATIENT
  Age: 8 Year
  Sex: Male
  Weight: 28.6 kg

DRUGS (4)
  1. VYVANSE [Suspect]
     Indication: ATTENTION DEFICIT/HYPERACTIVITY DISORDER
     Dosage: 30 MG, 1X/DAY:QD, ORAL
     Route: 048
     Dates: start: 20070830
  2. GROWTROPIN II (SOMATROPIN) [Concomitant]
  3. COQ10 (UBIDECARENONE) [Concomitant]
  4. MULTIVITAMIN /00831701/ (VITAMINS NOS) [Concomitant]

REACTIONS (2)
  - DYSKINESIA [None]
  - THINKING ABNORMAL [None]
